FAERS Safety Report 8525566 (Version 4)
Quarter: 2013Q4

REPORT INFORMATION
  Report Type: Spontaneous
  Country: US (occurrence: US)
  Receive Date: 20120423
  Receipt Date: 20131021
  Transmission Date: 20140711
  Serious: Yes (Other)
  Sender: FDA-Public Use
  Company Number: US-ASTRAZENECA-2012SE24666

PATIENT
  Age: 63 Year
  Sex: Male

DRUGS (43)
  1. ATENOLOL [Suspect]
     Indication: ESSENTIAL HYPERTENSION
     Route: 048
     Dates: start: 20110714
  2. ATENOLOL [Suspect]
     Indication: ESSENTIAL HYPERTENSION
     Route: 048
     Dates: start: 20130404
  3. NEXIUM [Suspect]
     Route: 048
     Dates: start: 20111101
  4. NEXIUM [Suspect]
     Route: 048
     Dates: start: 20120406
  5. CRESTOR [Suspect]
     Route: 048
     Dates: start: 20111101
  6. CRESTOR [Suspect]
     Route: 048
     Dates: start: 20130404
  7. FUROSEMIDE [Concomitant]
     Indication: OEDEMA
     Route: 048
     Dates: start: 20120326
  8. FUROSEMIDE [Concomitant]
     Indication: OEDEMA
     Route: 048
     Dates: start: 20130404
  9. ALPRAZOLAM [Concomitant]
     Indication: GENERALISED ANXIETY DISORDER
     Dosage: HALF TO ONE TWO TIMES DAILY AS NEEDED
     Route: 048
     Dates: start: 20120326
  10. ALPRAZOLAM [Concomitant]
     Indication: PANIC ATTACK
     Dosage: HALF TO ONE TWO TIMES DAILY AS NEEDED
     Route: 048
     Dates: start: 20120326
  11. ALPRAZOLAM [Concomitant]
     Indication: GENERALISED ANXIETY DISORDER
     Dosage: ONE HALF DAILY AS NEEDED
     Route: 048
     Dates: start: 20130325
  12. ALPRAZOLAM [Concomitant]
     Indication: PANIC ATTACK
     Dosage: ONE HALF DAILY AS NEEDED
     Route: 048
     Dates: start: 20130325
  13. PROMETHAZINE DM [Concomitant]
     Indication: COUGH
     Dosage: 6.25-15MG/ 5ML 1 TO 2 FOUR TIMES DAILY
     Route: 048
     Dates: start: 20120308
  14. NOVOLOG FLEXPEN [Concomitant]
     Dosage: 100UNIT/ML 20 UNITS BEFORE EVERY MEAL
     Route: 058
     Dates: start: 20120228
  15. NOVOLOG FLEXPEN [Concomitant]
     Dosage: 100UNIT/ML 20 UNITS BEFORE EVERY MEAL
     Route: 058
     Dates: start: 20130404
  16. MUCINEX D [Concomitant]
     Indication: NASAL CONGESTION
     Dosage: 120-1200MG 12 HR TWO TIMES DAILY AS NEEDED
     Route: 048
     Dates: start: 20120227
  17. PAROXETINE HCL [Concomitant]
     Indication: DYSTHYMIC DISORDER
     Route: 048
     Dates: start: 20120202
  18. PAROXETINE HCL [Concomitant]
     Indication: DYSTHYMIC DISORDER
     Route: 048
     Dates: start: 20130603
  19. METOCLOPRAMIDE HCL [Concomitant]
     Indication: DIABETIC GASTROPARESIS
     Route: 048
     Dates: start: 20120127
  20. SOMA [Concomitant]
     Indication: SCIATICA
     Route: 048
     Dates: start: 20120214
  21. SOMA [Concomitant]
     Indication: BACK PAIN
     Route: 048
     Dates: start: 20120214
  22. SOMA [Concomitant]
     Indication: SCIATICA
     Route: 048
     Dates: start: 20120214
  23. SOMA [Concomitant]
     Indication: BACK PAIN
     Route: 048
     Dates: start: 20120214
  24. SOMA [Concomitant]
     Indication: SCIATICA
     Route: 048
     Dates: start: 20130513
  25. SOMA [Concomitant]
     Indication: BACK PAIN
     Route: 048
     Dates: start: 20130513
  26. ACUPRIL [Concomitant]
     Indication: ESSENTIAL HYPERTENSION
     Route: 048
     Dates: start: 20111102
  27. ACUPRIL [Concomitant]
     Indication: ESSENTIAL HYPERTENSION
     Route: 048
     Dates: start: 20130404
  28. JANUMET [Concomitant]
     Indication: DIABETES MELLITUS
     Dosage: 50-1000MG TWICE DAILY FOR 90 DAYS
     Route: 048
     Dates: start: 20120202
  29. JANUMET [Concomitant]
     Indication: DIABETES MELLITUS
     Dosage: 50-1000MG TWICE DAILY FOR 90 DAYS
     Route: 048
     Dates: start: 20130404
  30. GLUCOTROL XL [Concomitant]
     Indication: DIABETES MELLITUS
     Route: 048
     Dates: start: 20120202
  31. LANTUS SOLOSTAR [Concomitant]
     Dosage: 100UNIT/ML 55 TWO TIMES DAILY FOR 90 DAYS
     Route: 058
     Dates: start: 20120202
  32. LANTUS SOLOSTAR [Concomitant]
     Dosage: 100UNIT/ML 60 UNITS TWO TIMES DAILY FOR 90 DAYS
     Route: 058
     Dates: start: 20130404
  33. ACTOS [Concomitant]
     Route: 048
     Dates: start: 20120104
  34. ACTOS [Concomitant]
     Route: 048
     Dates: start: 20130404
  35. POTASSIUM CHLORIDE CRYS CR [Concomitant]
     Route: 048
     Dates: start: 20111021
  36. POTASSIUM CHLORIDE CRYS CR [Concomitant]
     Route: 048
     Dates: start: 20130426
  37. LYRICA [Concomitant]
     Indication: NEUROPATHY PERIPHERAL
     Route: 048
     Dates: start: 20111213
  38. LYRICA [Concomitant]
     Indication: NEUROPATHY PERIPHERAL
     Route: 048
     Dates: start: 20130404
  39. TRICOR [Concomitant]
     Route: 048
     Dates: start: 20130404
  40. ASPIRIN EC [Concomitant]
     Route: 048
     Dates: start: 20130404
  41. SPIRONOLACTONE [Concomitant]
     Route: 048
     Dates: start: 20130404
  42. GLIPIZIDE [Concomitant]
     Route: 048
     Dates: start: 20130404
  43. AMITRIPTYLINE HCL [Concomitant]
     Route: 048
     Dates: start: 20130227

REACTIONS (25)
  - Tremor [Unknown]
  - Ankle fracture [Unknown]
  - Transient ischaemic attack [Unknown]
  - Lower limb fracture [Unknown]
  - Convulsion [None]
  - Chronic sinusitis [Unknown]
  - Diabetes mellitus inadequate control [Unknown]
  - Diabetic gastroparesis [Unknown]
  - Gastroenteritis viral [Unknown]
  - Neck pain [Unknown]
  - Otitis media [Unknown]
  - Anxiety [Unknown]
  - Pneumonia [Unknown]
  - Vertigo [Unknown]
  - Otitis externa [Unknown]
  - Nail disorder [Unknown]
  - Essential hypertension [Unknown]
  - Cough [Unknown]
  - Hypokalaemia [Unknown]
  - Diabetic neuropathy [Unknown]
  - Regurgitation [Unknown]
  - Vomiting [Unknown]
  - Back pain [Unknown]
  - Infection [Unknown]
  - Drug dose omission [Unknown]
